FAERS Safety Report 15358119 (Version 1)
Quarter: 2018Q3

REPORT INFORMATION
  Report Type: Spontaneous
  Country: US (occurrence: US)
  Receive Date: 20180830
  Receipt Date: 20180830
  Transmission Date: 20181010
  Serious: Yes (Hospitalization)
  Sender: FDA-Public Use
  Company Number: None

PATIENT
  Age: 63 Year
  Sex: Male
  Weight: 106.95 kg

DRUGS (1)
  1. NUVIGIL [Suspect]
     Active Substance: ARMODAFINIL
     Dates: start: 20180827

REACTIONS (6)
  - Vomiting [None]
  - Oedema [None]
  - Computerised tomogram abnormal [None]
  - Nausea [None]
  - Dizziness [None]
  - Disease progression [None]

NARRATIVE: CASE EVENT DATE: 20180824
